FAERS Safety Report 17305733 (Version 3)
Quarter: 2020Q1

REPORT INFORMATION
  Report Type: Report from Study
  Country: UG (occurrence: UG)
  Receive Date: 20200123
  Receipt Date: 20200210
  Transmission Date: 20200409
  Serious: Yes (Other)
  Sender: FDA-Public Use
  Company Number: UG-VIIV HEALTHCARE LIMITED-UG2020GSK008904

PATIENT
  Age: 29 Year
  Sex: Female

DRUGS (34)
  1. EFAVIRENZ. [Suspect]
     Active Substance: EFAVIRENZ
     Indication: HIV INFECTION
     Dosage: 600 MG
     Dates: start: 20191106, end: 20200114
  2. AMOXYCILLIN [Concomitant]
     Active Substance: AMOXICILLIN
     Dosage: 1500 MG
     Dates: start: 20180716, end: 201807
  3. METRONIDAZOLE. [Concomitant]
     Active Substance: METRONIDAZOLE
     Dosage: 1200 MG
     Dates: start: 20180903, end: 20180908
  4. PARACETAMOL [Concomitant]
     Active Substance: ACETAMINOPHEN
     Dosage: 3 G
     Dates: start: 20180716, end: 201807
  5. PARACETAMOL [Concomitant]
     Active Substance: ACETAMINOPHEN
     Dosage: 3 G
     Dates: start: 20181012, end: 20181016
  6. PARACETAMOL [Concomitant]
     Active Substance: ACETAMINOPHEN
     Dosage: 2 TABLETS
     Dates: start: 201905, end: 20190514
  7. PARACETAMOL [Concomitant]
     Active Substance: ACETAMINOPHEN
     Dosage: 3 G
     Dates: start: 201912, end: 201912
  8. FERROUS SULFATE. [Concomitant]
     Active Substance: FERROUS SULFATE
     Indication: ANAEMIA PROPHYLAXIS
     Dosage: 1 TABLET
     Dates: start: 20180606, end: 201809
  9. FOLIC ACID. [Concomitant]
     Active Substance: FOLIC ACID
     Indication: ANAEMIA PROPHYLAXIS
     Dosage: 1 TABLET
     Dates: start: 20191106, end: 201912
  10. PARACETAMOL [Concomitant]
     Active Substance: ACETAMINOPHEN
     Dosage: 3 G
     Dates: start: 20180903, end: 20180906
  11. PYRIDOXINE [Concomitant]
     Active Substance: PYRIDOXINE
     Dosage: 25 MG
     Dates: start: 20191106, end: 20200115
  12. CLOTRIMAZOLE PESSARIES [Concomitant]
     Dosage: 1 PESSARY
     Dates: start: 20180820, end: 20180827
  13. DOLUTEGRAVIR [Suspect]
     Active Substance: DOLUTEGRAVIR
     Dosage: 50 MG
     Dates: start: 20200115
  14. LAMIVUDINE + TENOFOVIR DISOPROXIL FUMARATE [Concomitant]
     Active Substance: LAMIVUDINE\TENOFOVIR DISOPROXIL FUMARATE
     Dosage: 300MG+300MG
     Dates: start: 20200115
  15. METRONIDAZOLE. [Concomitant]
     Active Substance: METRONIDAZOLE
     Dosage: 500 MG
     Dates: start: 20180716, end: 20180716
  16. AMPICLOX [Concomitant]
     Dosage: 1500 MG
     Dates: start: 20181120, end: 20181125
  17. MAGNESIUM [Concomitant]
     Active Substance: MAGNESIUM
     Dosage: UNK
     Dates: start: 20180611, end: 20180616
  18. LAMIVUDINE + TENOFOVIR DISOPROXIL FUMARATE [Concomitant]
     Active Substance: LAMIVUDINE\TENOFOVIR DISOPROXIL FUMARATE
     Indication: HIV INFECTION
     Dosage: 600 MG
     Dates: start: 20180606, end: 20191105
  19. LAMIVUDINE + TENOFOVIR DISOPROXIL FUMARATE [Concomitant]
     Active Substance: LAMIVUDINE\TENOFOVIR DISOPROXIL FUMARATE
     Dosage: 300MG+300MG
     Dates: start: 20191106, end: 20200114
  20. AMOXYCILLIN [Concomitant]
     Active Substance: AMOXICILLIN
     Dosage: 1500 MG
     Dates: start: 20180827, end: 201808
  21. ERYTHROMYCIN. [Concomitant]
     Active Substance: ERYTHROMYCIN
     Dosage: 1500 MG
     Dates: start: 20180903, end: 20180908
  22. METRONIDAZOLE. [Concomitant]
     Active Substance: METRONIDAZOLE
     Dosage: 1200 MG
     Dates: start: 20180827, end: 201808
  23. JADELLE IMPLANT [Concomitant]
     Dosage: 150 MG
     Dates: start: 20200115
  24. COTRIMOXAZOLE [Concomitant]
     Active Substance: SULFAMETHOXAZOLE\TRIMETHOPRIM
     Dosage: 960 MG
     Dates: start: 20180606
  25. METRONIDAZOLE. [Concomitant]
     Active Substance: METRONIDAZOLE
     Dosage: UNK
     Dates: start: 201912, end: 201912
  26. CALCIUM LACTATE [Concomitant]
     Active Substance: CALCIUM LACTATE
     Dosage: 500 MG
     Dates: start: 20181112, end: 201811
  27. FOLIC ACID. [Concomitant]
     Active Substance: FOLIC ACID
     Dosage: 2 TABLETS
     Dates: start: 20200115
  28. CETRIZINE [Concomitant]
     Active Substance: CETIRIZINE HYDROCHLORIDE
     Dosage: 500 MG
     Dates: start: 20181112, end: 201811
  29. PARACETAMOL [Concomitant]
     Active Substance: ACETAMINOPHEN
     Dosage: 3 G
     Dates: start: 20181118, end: 20181120
  30. COARTEM [Concomitant]
     Active Substance: ARTEMETHER\LUMEFANTRINE
     Dosage: 8 TABLETS
     Dates: start: 20181118, end: 20181120
  31. ISONIAZID. [Concomitant]
     Active Substance: ISONIAZID
     Dosage: 8 TABLETS
     Dates: start: 20191106, end: 20200115
  32. DOLUTEGRAVIR [Suspect]
     Active Substance: DOLUTEGRAVIR
     Indication: HIV INFECTION
     Dosage: 50 MG
     Dates: start: 20180606, end: 20191105
  33. AMOXYCILLIN [Concomitant]
     Active Substance: AMOXICILLIN
     Dosage: UNK
     Dates: start: 201912, end: 201912
  34. PITOCIN [Concomitant]
     Active Substance: OXYTOCIN
     Dosage: 10 IU
     Dates: start: 20180828, end: 20180828

REACTIONS (1)
  - Abortion spontaneous [Recovered/Resolved]

NARRATIVE: CASE EVENT DATE: 20191218
